FAERS Safety Report 9549528 (Version 1)
Quarter: 2013Q3

REPORT INFORMATION
  Report Type: Spontaneous
  Country: GB (occurrence: None)
  Receive Date: 20130919
  Receipt Date: 20130919
  Transmission Date: 20140515
  Serious: No
  Sender: FDA-Public Use
  Company Number: AUR-APL-2013-07665

PATIENT
  Age: 75 Year
  Sex: Male

DRUGS (9)
  1. CLOPIDOGREL [Suspect]
     Indication: ACUTE MYOCARDIAL INFARCTION
     Dosage: 75MG (75MG, 1 IN 1D) ORAL
     Route: 048
  2. ASPIRIN (ACETYLSALICYLIC ACID) [Suspect]
     Indication: ACUTE MYOCARDIAL INFARCTION
     Dosage: 75MG (75MG, 1 IN 1D) ORAL
     Route: 048
  3. BENDROFLUMETHIAZIDE (BENDROFLUMETHIZAIDE) [Concomitant]
  4. BISOPROLOL (BISOPROLOL) [Concomitant]
  5. EZETIMIBE AND SIMVASTATIN (INEGY) [Concomitant]
  6. FINASTERIDE (FINASTERIDE) [Concomitant]
  7. GLYCERYL TRINITRATE (GLYCERYL TRINITRATE) [Concomitant]
  8. PANTOPRAZOLE (PANTOPRAZOLE) [Concomitant]
  9. RAMIPRIL (RAMIPRIL) [Concomitant]

REACTIONS (2)
  - Rectal haemorrhage [None]
  - Melaena [None]
